FAERS Safety Report 7130463-2 (Version None)
Quarter: 2010Q4

REPORT INFORMATION
  Report Type: 
  Country: None (occurrence: None)
  Receive Date: 20101201
  Receipt Date: 20101122
  Transmission Date: 20110411
  Serious: Yes (Hospitalization)
  Sender: FDA-Public Use
  Company Number: FR-JNJFOC-20100707914

PATIENT
  Age: 60 Year
  Sex: Male

DRUGS (19)
  1. CAELYX [Suspect]
     Indication: KAPOSI'S SARCOMA
     Dosage: CYCLE 7
     Route: 042
  2. CAELYX [Suspect]
     Dosage: CYCLE 6
     Route: 042
  3. CAELYX [Suspect]
     Dosage: CYCLE 5
     Route: 042
  4. CAELYX [Suspect]
     Dosage: CYCLE 4
     Route: 042
  5. CAELYX [Suspect]
     Dosage: CYCLE 3
     Route: 042
  6. CAELYX [Suspect]
     Dosage: CYCLE 2
     Route: 042
  7. CAELYX [Suspect]
     Dosage: CYCLE 1
     Route: 042
  8. COVERSYL [Concomitant]
     Route: 065
  9. AMLOR [Concomitant]
     Route: 065
  10. EUPRESSYL [Concomitant]
     Route: 065
  11. GLUCOPHAGE [Concomitant]
     Route: 065
  12. ZOCOR [Concomitant]
     Route: 065
  13. XATRAL [Concomitant]
     Route: 065
  14. NOVOMIX [Concomitant]
     Route: 065
  15. NOVORAPID [Concomitant]
     Route: 065
  16. NEXIUM [Concomitant]
     Route: 065
  17. ACETAMINOPHEN [Concomitant]
     Route: 065
  18. SPASFON [Concomitant]
     Route: 065
  19. ASPEGIC 1000 [Concomitant]
     Route: 065

REACTIONS (1)
  - COLITIS ISCHAEMIC [None]
